FAERS Safety Report 4430093-7 (Version None)
Quarter: 2004Q3

REPORT INFORMATION
  Report Type: 
  Country: None (occurrence: None)
  Receive Date: 20040816
  Receipt Date: 20040325
  Transmission Date: 20050211
  Serious: Yes (Other)
  Sender: FDA-Public Use
  Company Number: 805#1#2004-00004

PATIENT
  Age: 1 Month
  Sex: Male

DRUGS (8)
  1. ALPROSTADIL [Suspect]
     Indication: HEART DISEASE CONGENITAL
     Dosage: INTRAVENOUS DRIP
     Route: 041
     Dates: start: 20040301
  2. ... [Suspect]
  3. .. [Suspect]
  4. ,, [Suspect]
  5. DOPAMINE HCL [Concomitant]
  6. MIDAZOLAM HCL [Concomitant]
  7. DOBUTAMINE HCL [Concomitant]
  8. FUROSEMIDE [Concomitant]

REACTIONS (7)
  - ABDOMINAL DISTENSION [None]
  - ACQUIRED PYLORIC STENOSIS [None]
  - BLOOD ALKALINE PHOSPHATASE INCREASED [None]
  - CARDIAC FAILURE [None]
  - GASTRIC MUCOSAL HYPERTROPHY [None]
  - HYPOTENSION [None]
  - PERIOSTITIS [None]
